FAERS Safety Report 13691659 (Version 30)
Quarter: 2019Q1

REPORT INFORMATION
  Report Type: Report from Study
  Country: US (occurrence: US)
  Receive Date: 20170626
  Receipt Date: 20190130
  Transmission Date: 20190417
  Serious: Yes (Life-Threatening, Hospitalization, Other)
  Sender: FDA-Public Use
  Company Number: US-ACTELION-A-NJ2017-155345

PATIENT
  Age: 35 Year
  Sex: Female
  Weight: 72.56 kg

DRUGS (17)
  1. VELETRI [Suspect]
     Active Substance: EPOPROSTENOL
     Dosage: 7 NG/KG, PER MIN
     Route: 042
     Dates: start: 20170605
  2. HYDROXYCHLOROQUINE [Concomitant]
     Active Substance: HYDROXYCHLOROQUINE
     Dosage: 200 MG, QD
  3. HYDROCODONE BITARTRATE AND ACETAMINOPHEN [Concomitant]
     Active Substance: ACETAMINOPHEN\HYDROCODONE BITARTRATE
  4. VELETRI [Suspect]
     Active Substance: EPOPROSTENOL
     Dosage: 11 NG/KG, PER MIN
     Route: 042
  5. VELETRI [Suspect]
     Active Substance: EPOPROSTENOL
     Dosage: 14 NG/KG, PER MIN
     Route: 042
  6. MERCAPTOPURINE. [Suspect]
     Active Substance: MERCAPTOPURINE
     Indication: PRODUCT USED FOR UNKNOWN INDICATION
     Route: 065
  7. ADEMPAS [Concomitant]
     Active Substance: RIOCIGUAT
     Dosage: 2.5 MG, TID
  8. FAMOTIDINE. [Concomitant]
     Active Substance: FAMOTIDINE
     Dosage: 20 MG, BID
  9. FUROSEMIDE. [Concomitant]
     Active Substance: FUROSEMIDE
  10. OPSUMIT [Suspect]
     Active Substance: MACITENTAN
     Indication: PULMONARY ARTERIAL HYPERTENSION
     Dosage: 10 MG, QD
     Route: 048
     Dates: start: 20170606
  11. OXYGEN. [Concomitant]
     Active Substance: OXYGEN
     Dosage: 4 L/MIN, UNK
  12. VITAMIN D3 [Concomitant]
     Active Substance: CHOLECALCIFEROL
  13. SULFAMETHOXAZOLE [Concomitant]
     Active Substance: SULFAMETHOXAZOLE
  14. POTASSIUM [Concomitant]
     Active Substance: POTASSIUM
  15. VELETRI [Suspect]
     Active Substance: EPOPROSTENOL
     Indication: PULMONARY ARTERIAL HYPERTENSION
     Dosage: 17 NG/KG, PER MIN
     Route: 042
  16. MYCOPHENOLATE [Concomitant]
     Active Substance: MYCOPHENOLIC ACID
  17. PREDNISONE. [Concomitant]
     Active Substance: PREDNISONE
     Dosage: 50 MG, UNK

REACTIONS (51)
  - Pulmonary hypertension [Recovering/Resolving]
  - Back pain [Unknown]
  - Blood alkaline phosphatase increased [Unknown]
  - Dyspnoea [Unknown]
  - Catheter site erythema [Unknown]
  - Myalgia [Recovering/Resolving]
  - Catheter site pruritus [Unknown]
  - Anaemia [Recovered/Resolved]
  - Chest pain [Recovering/Resolving]
  - Transfusion [Unknown]
  - Cough [Unknown]
  - Administration site pruritus [Unknown]
  - Erythema [Unknown]
  - Dyspnoea exertional [Unknown]
  - Device issue [Recovered/Resolved]
  - Thrombocytopenia [Recovered/Resolved]
  - Hospitalisation [Unknown]
  - Vision blurred [Unknown]
  - Musculoskeletal stiffness [Unknown]
  - Diarrhoea [Unknown]
  - Pain in extremity [Unknown]
  - Pulmonary oedema [Recovered/Resolved]
  - Systemic lupus erythematosus [Unknown]
  - Abdominal pain [Unknown]
  - Dysgeusia [Unknown]
  - Nasopharyngitis [Unknown]
  - Rash [Unknown]
  - Capillary nail refill test abnormal [Unknown]
  - Pneumonia [Recovering/Resolving]
  - Fluid overload [Recovered/Resolved]
  - Connective tissue disorder [Unknown]
  - Musculoskeletal pain [Unknown]
  - Decreased appetite [Unknown]
  - Dizziness [Unknown]
  - Oedema peripheral [Unknown]
  - Nausea [Unknown]
  - Epistaxis [Recovered/Resolved]
  - Pain in jaw [Unknown]
  - Headache [Unknown]
  - Pain [Unknown]
  - Rhinovirus infection [Recovering/Resolving]
  - Weight decreased [Unknown]
  - Arthralgia [Unknown]
  - Constipation [Unknown]
  - Lung consolidation [Recovering/Resolving]
  - Pancytopenia [Recovering/Resolving]
  - Embolism [Unknown]
  - Platelet count decreased [Unknown]
  - Hypotension [Unknown]
  - Vomiting [Unknown]
  - Heart rate increased [Unknown]

NARRATIVE: CASE EVENT DATE: 20170605
